FAERS Safety Report 11237661 (Version 2)
Quarter: 2015Q3

REPORT INFORMATION
  Report Type: Spontaneous
  Country: US (occurrence: US)
  Receive Date: 20150703
  Receipt Date: 20150821
  Transmission Date: 20151125
  Serious: Yes (Hospitalization)
  Sender: FDA-Public Use
  Company Number: US-JNJFOC-20150205737

PATIENT
  Age: 69 Year
  Sex: Female

DRUGS (10)
  1. ACYCLOVIR. [Concomitant]
     Active Substance: ACYCLOVIR
  2. MULTIVITAMINS [Concomitant]
     Active Substance: VITAMINS
  3. IBUPROFEN. [Concomitant]
     Active Substance: IBUPROFEN
     Dates: end: 201506
  4. IMBRUVICA [Suspect]
     Active Substance: IBRUTINIB
     Indication: CHRONIC LYMPHOCYTIC LEUKAEMIA
     Route: 048
     Dates: start: 20141003
  5. IMBRUVICA [Suspect]
     Active Substance: IBRUTINIB
     Indication: THERAPY NAIVE
     Route: 048
     Dates: start: 20141003
  6. CALCIUM+VITAMIN D [Concomitant]
     Active Substance: CALCIUM\VITAMIN D
  7. COLACE [Concomitant]
     Active Substance: DOCUSATE SODIUM
  8. OCUVITE NOS [Concomitant]
  9. GLUCOSAMINE [Concomitant]
     Active Substance: GLUCOSAMINE
  10. LOSARTAN AND HYDROCHLOROTHIAZIDE [Concomitant]
     Active Substance: HYDROCHLOROTHIAZIDE\LOSARTAN POTASSIUM

REACTIONS (4)
  - Alopecia [Not Recovered/Not Resolved]
  - Hypertension [Recovering/Resolving]
  - Pericardial effusion [Unknown]
  - Pericarditis [Recovering/Resolving]

NARRATIVE: CASE EVENT DATE: 201506
